FAERS Safety Report 14899840 (Version 1)
Quarter: 2018Q2

REPORT INFORMATION
  Report Type: Spontaneous
  Country: US (occurrence: US)
  Receive Date: 20180516
  Receipt Date: 20180516
  Transmission Date: 20180711
  Serious: Yes (Hospitalization)
  Sender: FDA-Public Use
  Company Number: US-SUN PHARMACEUTICAL INDUSTRIES LTD-2018US-172106

PATIENT
  Age: 78 Year
  Sex: Female

DRUGS (2)
  1. FUROSEMIDE. [Concomitant]
     Active Substance: FUROSEMIDE
     Indication: CARDIOVERSION
     Dosage: UNK
     Route: 048
  2. DIGOXIN. [Suspect]
     Active Substance: DIGOXIN
     Indication: CARDIOVERSION
     Dosage: UNK
     Route: 048

REACTIONS (4)
  - Blood creatinine increased [Unknown]
  - Ventricular tachycardia [Unknown]
  - Hypokalaemia [Unknown]
  - Toxicity to various agents [Unknown]
